FAERS Safety Report 24024108 (Version 2)
Quarter: 2024Q2

REPORT INFORMATION
  Report Type: Report from Study
  Country: AT (occurrence: AT)
  Receive Date: 20240627
  Receipt Date: 20240628
  Transmission Date: 20240715
  Serious: No
  Sender: FDA-Public Use
  Company Number: AT-ROCHE-3117542

PATIENT
  Age: 49 Year
  Sex: Female
  Weight: 54.0 kg

DRUGS (12)
  1. ALECTINIB [Suspect]
     Active Substance: ALECTINIB
     Indication: Non-small cell lung cancer metastatic
     Route: 048
     Dates: start: 20220127
  2. ESCITALOPRAM [Concomitant]
     Active Substance: ESCITALOPRAM OXALATE
     Indication: Depression
     Dosage: YES
     Route: 048
     Dates: start: 20210121
  3. LORLATINIB [Concomitant]
     Active Substance: LORLATINIB
     Dates: start: 20220726
  4. LORLATINIB [Concomitant]
     Active Substance: LORLATINIB
     Dates: start: 20220726
  5. CARBOPLATIN [Concomitant]
     Active Substance: CARBOPLATIN
     Dates: start: 20220916, end: 20221123
  6. PEMETREXED [Concomitant]
     Active Substance: PEMETREXED
     Dates: start: 20220916, end: 20221123
  7. PEMBROLIZUMAB [Concomitant]
     Active Substance: PEMBROLIZUMAB
     Dates: start: 20220916, end: 20221123
  8. BRIGATINIB [Concomitant]
     Active Substance: BRIGATINIB
     Dates: start: 20230209
  9. BRIGATINIB [Concomitant]
     Active Substance: BRIGATINIB
  10. ERYCYTOL [HYDROXOCOBALAMIN] [Concomitant]
     Route: 030
     Dates: start: 20220914
  11. FOLIC ACID [Concomitant]
     Active Substance: FOLIC ACID
     Route: 048
     Dates: start: 20220914
  12. DEXAMETHASONE [Concomitant]
     Active Substance: DEXAMETHASONE
     Route: 048
     Dates: start: 20220914

REACTIONS (1)
  - Lymphadenopathy [Recovering/Resolving]

NARRATIVE: CASE EVENT DATE: 20220602
